FAERS Safety Report 15307313 (Version 2)
Quarter: 2018Q3

REPORT INFORMATION
  Report Type: Spontaneous
  Country: MA (occurrence: MA)
  Receive Date: 20180822
  Receipt Date: 20180927
  Transmission Date: 20181010
  Serious: Yes (Hospitalization, Other)
  Sender: FDA-Public Use
  Company Number: MA-PFIZER INC-2018333504

PATIENT
  Sex: Female

DRUGS (1)
  1. DOCETAXEL. [Suspect]
     Active Substance: DOCETAXEL
     Indication: BREAST CANCER METASTATIC
     Dosage: 150 MG, UNK
     Route: 041
     Dates: start: 20180727, end: 20180727

REACTIONS (4)
  - Rash [Recovered/Resolved with Sequelae]
  - Toxic skin eruption [Recovered/Resolved with Sequelae]
  - Ulcer [Recovered/Resolved with Sequelae]
  - Pruritus generalised [Recovered/Resolved with Sequelae]
